FAERS Safety Report 4386655-9 (Version None)
Quarter: 2004Q2

REPORT INFORMATION
  Report Type: 
  Country: None (occurrence: None)
  Receive Date: 20040623
  Receipt Date: 20040616
  Transmission Date: 20050107
  Serious: Yes (Hospitalization, Other)
  Sender: FDA-Public Use
  Company Number: KII-2004-0011431

PATIENT
  Age: 39 Year
  Sex: Female

DRUGS (1)
  1. OXYCONTIN [Suspect]
     Dosage: ORAL
     Route: 048

REACTIONS (6)
  - AGITATION [None]
  - COMA [None]
  - HYPOTENSION [None]
  - HYPOXIA [None]
  - OVERDOSE [None]
  - RESPIRATORY DEPRESSION [None]
